FAERS Safety Report 6689245-8 (Version None)
Quarter: 2010Q2

REPORT INFORMATION
  Report Type: 
  Country: None (occurrence: None)
  Receive Date: 20100409
  Receipt Date: 20100331
  Transmission Date: 20101027
  Serious: Yes (Other)
  Sender: FDA-Public Use
  Company Number: 2010SP007614

PATIENT
  Sex: Female

DRUGS (1)
  1. PROVENTIL-HFA [Suspect]
     Indication: DRUG USE FOR UNKNOWN INDICATION
     Dates: start: 20090101

REACTIONS (2)
  - HYPOAESTHESIA ORAL [None]
  - SWOLLEN TONGUE [None]
